FAERS Safety Report 10389036 (Version 1)
Quarter: 2014Q1

REPORT INFORMATION
  Report Type: Spontaneous
  Country: US (occurrence: None)
  Receive Date: 20140306
  Receipt Date: 20140306
  Transmission Date: 20141002
  Serious: Yes (Other)
  Sender: FDA-Public Use
  Company Number: 163-21880-13102594

PATIENT
  Age: 78 Year
  Sex: Male
  Weight: 79.9 kg

DRUGS (8)
  1. REVLIMID [Suspect]
     Indication: PLASMA CELL MYELOMA
     Route: 048
     Dates: start: 20130328, end: 20131011
  2. ZOMETA [Suspect]
     Indication: PRODUCT USED FOR UNKNOWN INDICATION
  3. METOPROLOL [Concomitant]
  4. ZOCOR (SIMVASTATIN) [Concomitant]
  5. SYNTHROID (LEVOTHYROXINE SODIUM) [Concomitant]
  6. FISH OIL [Concomitant]
  7. PAIN MEDS (UNSPECIFIED TRADITIONAL MEDICINE) [Concomitant]
  8. LASIX (FUROSEMIDE) [Concomitant]

REACTIONS (1)
  - Renal impairment [None]
